FAERS Safety Report 16271189 (Version 1)
Quarter: 2019Q2

REPORT INFORMATION
  Report Type: Spontaneous
  Country: US (occurrence: US)
  Receive Date: 20190503
  Receipt Date: 20190503
  Transmission Date: 20190711
  Serious: No
  Sender: FDA-Public Use
  Company Number: US-009507513-1905USA001028

PATIENT
  Age: 63 Year
  Sex: Male

DRUGS (2)
  1. BEXAROTENE. [Concomitant]
     Active Substance: BEXAROTENE
     Dosage: UNK
     Dates: start: 20181003
  2. INTRON A [Suspect]
     Active Substance: INTERFERON ALFA-2B
     Indication: CUTANEOUS T-CELL LYMPHOMA
     Dosage: STRENGTH: 6 MU/ML MDV, 0.5 MILLILITER, TIW
     Route: 058
     Dates: start: 20181219

REACTIONS (2)
  - Malaise [Unknown]
  - Fatigue [Unknown]

NARRATIVE: CASE EVENT DATE: 20190430
